FAERS Safety Report 12405923 (Version 1)
Quarter: 2016Q2

REPORT INFORMATION
  Report Type: Spontaneous
  Country: US (occurrence: None)
  Receive Date: 20160525
  Receipt Date: 20160525
  Transmission Date: 20160815
  Serious: No
  Sender: FDA-Public Use
  Company Number: None

PATIENT
  Age: 71 Year
  Sex: Female

DRUGS (1)
  1. IBRANCE [Suspect]
     Active Substance: PALBOCICLIB
     Indication: NEOPLASM MALIGNANT
     Dosage: 125 MG CAP 1CAP QD 21 DAYS,7 OFF PO
     Route: 048
     Dates: start: 20160218

REACTIONS (2)
  - Neutropenia [None]
  - Fatigue [None]

NARRATIVE: CASE EVENT DATE: 2016
